FAERS Safety Report 8609235 (Version 3)
Quarter: 2012Q4

REPORT INFORMATION
  Report Type: 
  Country: US (occurrence: US)
  Receive Date: 20120611
  Receipt Date: 20120914
  Transmission Date: 20130627
  Serious: No
  Sender: FDA-Public Use
  Company Number: US-PFIZER INC-2012134245

PATIENT
  Age: 89 Year
  Sex: Female
  Weight: 63.49 kg

DRUGS (2)
  1. ESTRING [Suspect]
     Indication: URINARY INCONTINENCE
     Dosage: 2 mg, UNK
     Route: 067
  2. ADVIL [Suspect]
     Indication: PAIN
     Dosage: UNK

REACTIONS (3)
  - Drug ineffective [Unknown]
  - Abdominal distension [Unknown]
  - Cough [Unknown]
